FAERS Safety Report 8432466-4 (Version None)
Quarter: 2012Q2

REPORT INFORMATION
  Report Type: 
  Country: None (occurrence: None)
  Receive Date: 20120613
  Receipt Date: 20120604
  Transmission Date: 20120825
  Serious: Yes (Hospitalization, Other)
  Sender: FDA-Public Use
  Company Number: DE-NOVOPROD-348041

PATIENT
  Age: 39 Year
  Sex: Male
  Weight: 122 kg

DRUGS (2)
  1. TESTO                              /00069201/ [Concomitant]
     Indication: SECONDARY HYPOGONADISM
     Dosage: UNK
     Route: 030
     Dates: start: 19960101
  2. VICTOZA [Suspect]
     Indication: TYPE 2 DIABETES MELLITUS
     Dosage: 1.8 (UNITS UNSPECIFIED), UNKNOWN
     Route: 058
     Dates: start: 20091001, end: 20120201

REACTIONS (1)
  - PENIS CARCINOMA [None]
